FAERS Safety Report 6220389-0 (Version None)
Quarter: 2009Q2

REPORT INFORMATION
  Report Type: 
  Country: None (occurrence: None)
  Receive Date: 20090610
  Receipt Date: 20090605
  Transmission Date: 20091009
  Serious: Yes (Death, Disabling)
  Sender: FDA-Public Use
  Company Number: JP-BRISTOL-MYERS SQUIBB COMPANY-14479331

PATIENT
  Age: 72 Year
  Sex: Female
  Weight: 58 kg

DRUGS (5)
  1. ERBITUX [Suspect]
     Indication: COLON CANCER
     Dosage: 09DEC08-09DEC08:500MG 1 IN 1 WK.1ST INF 16DEC08-16DEC08:200MG 1 IN 1 WK. 2ND INF
     Route: 042
     Dates: start: 20081209, end: 20081209
  2. FLUOROURACIL [Concomitant]
     Indication: COLON CANCER
     Dosage: 5-FU: 500MG IV BOLUS (09DEC08)
     Route: 041
     Dates: start: 20081209, end: 20081209
  3. FOLINIC ACID [Concomitant]
     Indication: COLON CANCER
     Route: 041
     Dates: start: 20081209, end: 20081209
  4. IRINOTECAN HCL [Concomitant]
     Indication: COLON CANCER
     Route: 042
     Dates: start: 20081209, end: 20081209
  5. LEUCOVORIN CALCIUM [Concomitant]
     Indication: COLON CANCER
     Route: 041
     Dates: start: 20081209, end: 20081209

REACTIONS (3)
  - ACUTE MYOCARDIAL INFARCTION [None]
  - CEREBRAL INFARCTION [None]
  - DISSEMINATED INTRAVASCULAR COAGULATION [None]
